FAERS Safety Report 5850728-1 (Version None)
Quarter: 2008Q3

REPORT INFORMATION
  Report Type: 
  Country: None (occurrence: None)
  Receive Date: 20080819
  Receipt Date: 20080819
  Transmission Date: 20090109
  Serious: No
  Sender: FDA-Public Use
  Company Number: None

PATIENT
  Age: 41 Year
  Sex: Female
  Weight: 60.3284 kg

DRUGS (1)
  1. MINOCYCLINE  100 MG  DANBURY [Suspect]
     Indication: SINUSITIS
     Dosage: 100 MG BID PO
     Route: 048
     Dates: start: 20080814, end: 20080815

REACTIONS (3)
  - FEELING ABNORMAL [None]
  - MIGRAINE [None]
  - VISION BLURRED [None]
